FAERS Safety Report 18439977 (Version 4)
Quarter: 2020Q4

REPORT INFORMATION
  Report Type: Report from Study
  Country: US (occurrence: US)
  Receive Date: 20201029
  Receipt Date: 20201121
  Transmission Date: 20210114
  Serious: No
  Sender: FDA-Public Use
  Company Number: NVSC2020US290708

PATIENT
  Sex: Female

DRUGS (2)
  1. PIQRAY [Suspect]
     Active Substance: ALPELISIB
     Indication: PRODUCT USED FOR UNKNOWN INDICATION
     Dosage: 200 MG
     Route: 065
  2. PIQRAY [Suspect]
     Active Substance: ALPELISIB
     Dosage: 150 MG
     Route: 048

REACTIONS (11)
  - Asthenia [Unknown]
  - Cough [Unknown]
  - Drug intolerance [Unknown]
  - Weight decreased [Unknown]
  - Sleep disorder [Unknown]
  - Decreased appetite [Unknown]
  - Nausea [Unknown]
  - Rhinorrhoea [Unknown]
  - Fatigue [Unknown]
  - Thirst [Unknown]
  - Lethargy [Unknown]
